FAERS Safety Report 6643140-9 (Version None)
Quarter: 2010Q1

REPORT INFORMATION
  Report Type: 
  Country: None (occurrence: None)
  Receive Date: 20100319
  Receipt Date: 20100308
  Transmission Date: 20100710
  Serious: Yes (Other)
  Sender: FDA-Public Use
  Company Number: PHHY2009DE51258

PATIENT
  Age: 86 Year
  Sex: Female
  Weight: 65 kg

DRUGS (3)
  1. ACLASTA [Suspect]
     Indication: OSTEOPOROSIS
     Dosage: 5 MG/ YEAR
     Route: 042
     Dates: start: 20081101
  2. NOVORAPID [Concomitant]
     Indication: DIABETES MELLITUS
     Route: 058
  3. LANTUS [Concomitant]
     Indication: DIABETES MELLITUS
     Route: 058

REACTIONS (6)
  - AGITATION [None]
  - CARDIAC FLUTTER [None]
  - HYPOCALCAEMIA [None]
  - MUSCLE SPASMS [None]
  - MUSCULAR WEAKNESS [None]
  - PAIN [None]
